FAERS Safety Report 4560713-8 (Version None)
Quarter: 2005Q1

REPORT INFORMATION
  Report Type: 
  Country: None (occurrence: None)
  Receive Date: 20050126
  Receipt Date: 20050114
  Transmission Date: 20050727
  Serious: Yes (Death, Hospitalization)
  Sender: FDA-Public Use
  Company Number: JP-JNJFOC-20040705679

PATIENT
  Sex: Female
  Weight: 70 kg

DRUGS (19)
  1. REMICADE [Suspect]
     Route: 042
  2. REMICADE [Suspect]
     Route: 042
  3. REMICADE [Suspect]
     Route: 042
  4. REMICADE [Suspect]
     Indication: RHEUMATOID ARTHRITIS
     Route: 042
  5. LIPITOR [Concomitant]
  6. MEDROL [Concomitant]
     Route: 049
  7. MEDROL [Concomitant]
     Route: 049
  8. VOLTAREN [Concomitant]
     Route: 049
  9. RHEUMATREX [Concomitant]
     Route: 049
  10. RHEUMATREX [Concomitant]
     Route: 049
  11. RHEUMATREX [Concomitant]
     Indication: RHEUMATOID ARTHRITIS
     Route: 049
  12. MUCOSAL-L [Concomitant]
     Route: 049
  13. MUCODYNE [Concomitant]
     Dosage: 6 TABLETS
     Route: 049
  14. SINGULAIR [Concomitant]
     Route: 049
  15. THEO-DUR [Concomitant]
     Route: 049
  16. KLARICID [Concomitant]
     Route: 049
  17. TERSIGAN [Concomitant]
     Route: 055
  18. FLUTICASONE PROPIONATE [Concomitant]
     Route: 055
  19. INH [Concomitant]

REACTIONS (1)
  - PNEUMOCYSTIS JIROVECI PNEUMONIA [None]
